FAERS Safety Report 8687713 (Version 2)
Quarter: 2013Q4

REPORT INFORMATION
  Report Type: Spontaneous
  Country: JP (occurrence: JP)
  Receive Date: 20120727
  Receipt Date: 20131031
  Transmission Date: 20140711
  Serious: Yes (Other)
  Sender: FDA-Public Use
  Company Number: JP-009507513-1207JPN007850

PATIENT
  Sex: Male

DRUGS (1)
  1. FINASTERIDE [Suspect]
     Route: 048

REACTIONS (1)
  - Hypoacusis [Unknown]
